FAERS Safety Report 19674248 (Version 5)
Quarter: 2021Q4

REPORT INFORMATION
  Report Type: Spontaneous
  Country: US (occurrence: US)
  Receive Date: 20210809
  Receipt Date: 20211014
  Transmission Date: 20220304
  Serious: Yes (Other)
  Sender: FDA-Public Use
  Company Number: US-GLAXOSMITHKLINE-US2021AMR166362

PATIENT
  Sex: Female

DRUGS (1)
  1. ZEJULA [Suspect]
     Active Substance: NIRAPARIB
     Indication: Product used for unknown indication
     Dosage: 200 MG, QD

REACTIONS (8)
  - Disease progression [Not Recovered/Not Resolved]
  - Constipation [Recovering/Resolving]
  - Flatulence [Unknown]
  - Fatigue [Unknown]
  - Tumour marker increased [Not Recovered/Not Resolved]
  - Dry mouth [Unknown]
  - Insomnia [Unknown]
  - Nausea [Unknown]
